FAERS Safety Report 15003948 (Version 1)
Quarter: 2018Q2

REPORT INFORMATION
  Report Type: Spontaneous
  Country: SE (occurrence: SE)
  Receive Date: 20180613
  Receipt Date: 20180613
  Transmission Date: 20180711
  Serious: Yes (Hospitalization)
  Sender: FDA-Public Use
  Company Number: SE-TEVA-2018-SE-906763

PATIENT
  Age: 60 Year
  Sex: Female

DRUGS (1)
  1. LEVETIRACETAM. [Suspect]
     Active Substance: LEVETIRACETAM
     Route: 065

REACTIONS (1)
  - Substance-induced psychotic disorder [Recovering/Resolving]

NARRATIVE: CASE EVENT DATE: 201804
